FAERS Safety Report 9511208 (Version 1)
Quarter: 2013Q3

REPORT INFORMATION
  Report Type: Spontaneous
  Country: US (occurrence: None)
  Receive Date: 20130909
  Receipt Date: 20130909
  Transmission Date: 20140515
  Serious: No
  Sender: FDA-Public Use
  Company Number: None

PATIENT
  Sex: 0

DRUGS (5)
  1. ATORVASTATIN [Suspect]
     Indication: BLOOD CHOLESTEROL INCREASED
     Dosage: 10 MG 1 PILL ONCE A DAY AT BEDTIME BY MOUTH
     Route: 048
     Dates: start: 20130625
  2. FISH OIL [Concomitant]
  3. CENTRUM VITAMINS FOR MEN 50+ [Concomitant]
  4. PSYLLIUM HUSKS [Concomitant]
  5. CO Q-10 [Concomitant]

REACTIONS (3)
  - Arthralgia [None]
  - Pain in extremity [None]
  - Asthenia [None]
